FAERS Safety Report 10219102 (Version 1)
Quarter: 2014Q2

REPORT INFORMATION
  Report Type: Spontaneous
  Country: US (occurrence: US)
  Receive Date: 20140605
  Receipt Date: 20140605
  Transmission Date: 20141212
  Serious: No
  Sender: FDA-Public Use
  Company Number: US-BAYER-2014-068457

PATIENT
  Age: 50 Year
  Sex: Male

DRUGS (4)
  1. STAXYN (FDT/ODT) [Suspect]
     Indication: ERECTILE DYSFUNCTION
     Dosage: ONCE A WEEK
     Route: 048
     Dates: start: 20140502
  2. STAXYN (FDT/ODT) [Suspect]
     Indication: ERECTILE DYSFUNCTION
  3. STAXYN (FDT/ODT) [Suspect]
     Indication: ERECTILE DYSFUNCTION
  4. STAXYN (FDT/ODT) [Suspect]
     Indication: ERECTILE DYSFUNCTION

REACTIONS (2)
  - Drug ineffective [None]
  - Poor quality drug administered [None]
